FAERS Safety Report 25045179 (Version 1)
Quarter: 2025Q1

REPORT INFORMATION
  Report Type: Spontaneous
  Country: JP (occurrence: JP)
  Receive Date: 20250306
  Receipt Date: 20250306
  Transmission Date: 20250409
  Serious: Yes (Other)
  Sender: ACCORD
  Company Number: JP-Accord-471609

PATIENT
  Age: 8 Decade
  Sex: Male

DRUGS (9)
  1. CARBOPLATIN [Suspect]
     Active Substance: CARBOPLATIN
     Indication: Lung adenocarcinoma stage III
     Dosage: AREA UNDER THE CONCENTRATION-TIME CURVE OF 6, DAY 1
  2. PACLITAXEL [Concomitant]
     Active Substance: PACLITAXEL
     Indication: Lung adenocarcinoma stage III
     Dosage: ON DAYS 1, 8, AND 15
  3. AMLODIPINE [Concomitant]
     Active Substance: AMLODIPINE BESYLATE
  4. TELMISARTAN [Concomitant]
     Active Substance: TELMISARTAN
  5. PEMAFIBRATE [Concomitant]
     Active Substance: PEMAFIBRATE
  6. BISOPROLOL [Concomitant]
     Active Substance: BISOPROLOL
  7. DISOPYRAMIDE [Concomitant]
     Active Substance: DISOPYRAMIDE
  8. OMEGA-3-ACID ETHYL ESTERS [Concomitant]
     Active Substance: OMEGA-3-ACID ETHYL ESTERS
  9. LANSOPRAZOLE [Concomitant]
     Active Substance: LANSOPRAZOLE
     Indication: Gastrooesophageal reflux disease

REACTIONS (2)
  - Renal impairment [Unknown]
  - Condition aggravated [Unknown]
